FAERS Safety Report 8151903-6 (Version None)
Quarter: 2012Q1

REPORT INFORMATION
  Report Type: 
  Country: None (occurrence: None)
  Receive Date: 20120221
  Receipt Date: 20120216
  Transmission Date: 20120608
  Serious: Yes (Other)
  Sender: FDA-Public Use
  Company Number: US-AMGEN-USASP2012010511

PATIENT
  Age: 38 Year

DRUGS (5)
  1. PACLITAXEL [Suspect]
     Indication: BREAST CANCER
     Dosage: 8 MG/M2, UNK
     Route: 042
     Dates: start: 20090609
  2. NEULASTA [Suspect]
     Indication: BREAST CANCER
     Dosage: 6 MG, Q3WK
     Route: 058
     Dates: start: 20090610
  3. BEVACIZUMAB [Suspect]
     Indication: BREAST CANCER
     Dosage: UNK
     Route: 042
     Dates: start: 20090609
  4. CYCLOPHOSPHAMIDE [Suspect]
     Indication: BREAST CANCER
     Dosage: 600 MG/M2, UNK
     Route: 042
     Dates: start: 20090609
  5. DOXORUBICIN HCL [Suspect]
     Indication: BREAST CANCER
     Dosage: 60 MG/M2, UNK
     Route: 042
     Dates: start: 20090609

REACTIONS (1)
  - EJECTION FRACTION DECREASED [None]
